FAERS Safety Report 8882172 (Version 2)
Quarter: 2013Q1

REPORT INFORMATION
  Report Type: Spontaneous
  Country: US (occurrence: US)
  Receive Date: 20121102
  Receipt Date: 20130213
  Transmission Date: 20140127
  Serious: Yes (Life-Threatening)
  Sender: FDA-Public Use
  Company Number: US-009507513-1211USA000362

PATIENT
  Sex: Male
  Weight: 99.77 kg

DRUGS (8)
  1. JANUVIA [Suspect]
     Indication: DIABETES MELLITUS
     Dosage: 100 MG, QD
     Route: 048
     Dates: start: 201105
  2. METFORMIN [Concomitant]
     Indication: DIABETES MELLITUS
  3. STATIN (UNSPECIFIED) [Concomitant]
  4. GLIPIZIDE [Concomitant]
     Indication: DIABETES MELLITUS
  5. LISINOPRIL [Concomitant]
  6. SIMVASTATIN [Concomitant]
  7. TRAMADOL HYDROCHLORIDE [Concomitant]
  8. SINGULAIR [Concomitant]

REACTIONS (4)
  - Abdominal pain [Recovered/Resolved]
  - Amylase increased [Recovered/Resolved]
  - Lipase increased [Recovered/Resolved]
  - Pancreatitis [Recovered/Resolved]
